FAERS Safety Report 26051430 (Version 1)
Quarter: 2025Q4

REPORT INFORMATION
  Report Type: Spontaneous
  Country: EU (occurrence: EU)
  Receive Date: 20251117
  Receipt Date: 20251117
  Transmission Date: 20260117
  Serious: Yes (Death, Hospitalization, Other)
  Sender: BAXTER
  Company Number: None

PATIENT
  Age: 40 Year
  Sex: Female
  Weight: 94 kg

DRUGS (1)
  1. ERIBULIN [Suspect]
     Active Substance: ERIBULIN
     Indication: Invasive ductal breast carcinoma
     Dosage: 3.34 MG, 1 CYCLICAL
     Route: 042
     Dates: start: 20250423, end: 20250424

REACTIONS (4)
  - Thrombocytopenia [Fatal]
  - Acute generalised exanthematous pustulosis [Recovering/Resolving]
  - Sepsis [Fatal]
  - Leukopenia [Recovered/Resolved]

NARRATIVE: CASE EVENT DATE: 20250424
